FAERS Safety Report 4661633-0 (Version None)
Quarter: 2005Q2

REPORT INFORMATION
  Report Type: 
  Country: None (occurrence: None)
  Receive Date: 20050513
  Receipt Date: 20050511
  Transmission Date: 20051028
  Serious: Yes (Other)
  Sender: FDA-Public Use
  Company Number: PHEH2005US05383

PATIENT
  Age: 70 Year
  Sex: Female

DRUGS (1)
  1. ZELNORM [Suspect]
     Indication: CONSTIPATION
     Dosage: 6 MG, BID
     Route: 048

REACTIONS (4)
  - ABDOMINAL DISTENSION [None]
  - DIVERTICULITIS [None]
  - DRUG INEFFECTIVE [None]
  - STOMACH DISCOMFORT [None]
